FAERS Safety Report 5842562-3 (Version None)
Quarter: 2008Q3

REPORT INFORMATION
  Report Type: 
  Country: None (occurrence: None)
  Receive Date: 20080812
  Receipt Date: 20080731
  Transmission Date: 20090109
  Serious: Yes (Other)
  Sender: FDA-Public Use
  Company Number: GB-PFIZER INC-2008064599

PATIENT
  Age: 5 Year
  Sex: Male
  Weight: 22.9 kg

DRUGS (14)
  1. ZYVOX [Suspect]
     Indication: INFECTION
     Route: 042
     Dates: start: 20080706, end: 20080707
  2. ACYCLOVIR [Concomitant]
     Route: 048
  3. ACETYLSALICYLIC ACID SRT [Concomitant]
     Route: 048
  4. CO-TRIMOXAZOLE [Concomitant]
     Route: 048
  5. DIPYRIDAMOLE [Concomitant]
     Route: 048
  6. GABAPENTIN [Concomitant]
     Route: 048
  7. MEROPENEM [Concomitant]
     Route: 042
  8. MYCOPHENOLATE MOFETIL [Concomitant]
     Route: 048
  9. NYSTATIN [Concomitant]
     Route: 048
  10. ORAMORPH SR [Concomitant]
     Route: 048
  11. PARACETAMOL [Concomitant]
  12. PREDNISOLONE [Concomitant]
     Route: 048
  13. SODIUM BICARBONATE [Concomitant]
     Route: 048
  14. TACROLIMUS [Concomitant]
     Route: 048

REACTIONS (5)
  - HYPERSENSITIVITY [None]
  - OXYGEN CONSUMPTION INCREASED [None]
  - PAIN IN EXTREMITY [None]
  - RASH [None]
  - RASH GENERALISED [None]
